FAERS Safety Report 9619294 (Version 1)
Quarter: 2013Q4

REPORT INFORMATION
  Report Type: Spontaneous
  Country: DE (occurrence: DE)
  Receive Date: 20131014
  Receipt Date: 20131014
  Transmission Date: 20140711
  Serious: Yes (Hospitalization)
  Sender: FDA-Public Use
  Company Number: DE-NOVOPROD-389589

PATIENT
  Age: 49 Year
  Sex: Male
  Weight: 86.5 kg

DRUGS (2)
  1. PROTAPHANE [Suspect]
     Indication: TYPE 1 DIABETES MELLITUS
     Route: 065
  2. L-THYROXIN [Concomitant]
     Dosage: 0.05 MG, QD

REACTIONS (1)
  - Anaphylactic shock [Unknown]
